FAERS Safety Report 19643963 (Version 2)
Quarter: 2021Q3

REPORT INFORMATION
  Report Type: Report from Study
  Country: AR (occurrence: AR)
  Receive Date: 20210731
  Receipt Date: 20210816
  Transmission Date: 20211014
  Serious: Yes (Other)
  Sender: FDA-Public Use
  Company Number: NVSC2021AR170741

PATIENT
  Sex: Male

DRUGS (2)
  1. EXFORGE [Suspect]
     Active Substance: AMLODIPINE BESYLATE\VALSARTAN
     Indication: HYPERTENSION
     Dosage: 1 DF, QD (1 OF 10/160 MG), STARTED 10 YEARS AGO
     Route: 065
  2. LIPAREX [Concomitant]
     Indication: BLOOD CHOLESTEROL
     Dosage: STARTED MORE THAN 10 YEARS AGO
     Route: 065

REACTIONS (3)
  - Ear discomfort [Unknown]
  - Deafness [Not Recovered/Not Resolved]
  - Diabetes mellitus [Unknown]
